FAERS Safety Report 18678792 (Version 1)
Quarter: 2020Q4

REPORT INFORMATION
  Report Type: Spontaneous
  Country: JP (occurrence: JP)
  Receive Date: 20201229
  Receipt Date: 20201229
  Transmission Date: 20210114
  Serious: Yes (Death)
  Sender: FDA-Public Use
  Company Number: JP-PFIZER INC-2020511758

PATIENT
  Age: 78 Year
  Sex: Female

DRUGS (2)
  1. MEROPENEM. [Suspect]
     Active Substance: MEROPENEM
     Indication: PYONEPHROSIS
     Dosage: 0.5 G, 1X/DAY
     Route: 041
     Dates: start: 201511
  2. MEROPENEM. [Suspect]
     Active Substance: MEROPENEM
     Dosage: 0.5 G, 1X/DAY
     Route: 041
     Dates: start: 201908

REACTIONS (2)
  - Toxic epidermal necrolysis [Fatal]
  - Drug eruption [Fatal]
